FAERS Safety Report 18456244 (Version 1)
Quarter: 2020Q4

REPORT INFORMATION
  Report Type: Report from Study
  Country: None (occurrence: DE)
  Receive Date: 20201103
  Receipt Date: 20201103
  Transmission Date: 20210114
  Serious: Yes (Hospitalization)
  Sender: FDA-Public Use
  Company Number: DE-ABBVIE-20K-062-3632000-00

PATIENT
  Sex: Female

DRUGS (3)
  1. HUMIRA [Suspect]
     Active Substance: ADALIMUMAB
     Route: 058
     Dates: start: 202003
  2. HUMIRA [Suspect]
     Active Substance: ADALIMUMAB
     Indication: PSORIATIC ARTHROPATHY
     Route: 058
     Dates: start: 201111, end: 201903
  3. HUMIRA [Suspect]
     Active Substance: ADALIMUMAB
     Dosage: EVERY 4-5 WEEKS
     Route: 058
     Dates: start: 201903, end: 202003

REACTIONS (6)
  - Sacroiliitis [Recovered/Resolved]
  - Jaw cyst [Recovered/Resolved]
  - Feeling abnormal [Recovered/Resolved]
  - Inflammatory marker increased [Recovered/Resolved]
  - Uterine leiomyoma [Recovered/Resolved]
  - Psoriatic arthropathy [Recovered/Resolved]

NARRATIVE: CASE EVENT DATE: 201407
